FAERS Safety Report 8811564 (Version 15)
Quarter: 2012Q4

REPORT INFORMATION
  Report Type: 
  Country: US (occurrence: US)
  Receive Date: 20120927
  Receipt Date: 20121105
  Transmission Date: 20130627
  Serious: Yes (Life-Threatening, Hospitalization)
  Sender: FDA-Public Use
  Company Number: US-JNJFOC-20120910897

PATIENT
  Age: 78 None
  Sex: Female
  Weight: 73 kg

DRUGS (13)
  1. XARELTO [Suspect]
     Indication: CEREBROVASCULAR ACCIDENT PROPHYLAXIS
     Dosage: 1-2 months
     Route: 048
     Dates: start: 2012, end: 20120711
  2. XARELTO [Suspect]
     Indication: ATRIAL FIBRILLATION
     Dosage: 1-2 months
     Route: 048
     Dates: start: 2012, end: 20120711
  3. BABY ASPIRIN [Concomitant]
  4. LIPITOR [Concomitant]
     Route: 048
  5. ZETIA [Concomitant]
     Indication: PRODUCT USED FOR UNKNOWN INDICATION
  6. PRILOSEC [Concomitant]
     Indication: PRODUCT USED FOR UNKNOWN INDICATION
  7. RAMIPRIL [Concomitant]
  8. LEXAPRO [Concomitant]
  9. LUMIGAN [Concomitant]
     Indication: PRODUCT USED FOR UNKNOWN INDICATION
     Route: 047
  10. COMBIGAN [Concomitant]
     Indication: PRODUCT USED FOR UNKNOWN INDICATION
     Route: 047
  11. CALCIUM [Concomitant]
     Indication: PRODUCT USED FOR UNKNOWN INDICATION
  12. MULTIVITAMIN WITH MINERALS [Concomitant]
     Indication: PRODUCT USED FOR UNKNOWN INDICATION
  13. AMBIEN [Concomitant]
     Indication: PRODUCT USED FOR UNKNOWN INDICATION

REACTIONS (8)
  - Gastrointestinal haemorrhage [Recovered/Resolved with Sequelae]
  - Renal failure acute [Unknown]
  - Small intestinal obstruction [Recovered/Resolved]
  - Atrial fibrillation [Unknown]
  - Coagulopathy [Recovered/Resolved]
  - Vomiting [Unknown]
  - Pleural effusion [Unknown]
  - Depression [Unknown]
